FAERS Safety Report 13926493 (Version 1)
Quarter: 2017Q3

REPORT INFORMATION
  Report Type: Other
  Country: FR (occurrence: FR)
  Receive Date: 20170831
  Receipt Date: 20170831
  Transmission Date: 20171127
  Serious: Yes (Hospitalization)
  Sender: FDA-Public Use
  Company Number: FR-SYMPLMED PHARMACEUTICALS-2017SYMPLMED000475

PATIENT

DRUGS (20)
  1. COVERAM [Suspect]
     Active Substance: AMLODIPINE\PERINDOPRIL
     Dosage: 50 MG, SINGLE
     Route: 048
     Dates: start: 20170524, end: 20170524
  2. ABILIFY [Suspect]
     Active Substance: ARIPIPRAZOLE
     Indication: PRODUCT USED FOR UNKNOWN INDICATION
     Dosage: UNK
     Route: 048
     Dates: end: 20170523
  3. ABILIFY [Suspect]
     Active Substance: ARIPIPRAZOLE
     Dosage: 50 MG, SINGLE
     Route: 048
     Dates: start: 20170524, end: 20170524
  4. DEROXAT [Suspect]
     Active Substance: PAROXETINE HYDROCHLORIDE
     Indication: PRODUCT USED FOR UNKNOWN INDICATION
     Dosage: 20 MG, UNK
     Route: 048
     Dates: end: 20170523
  5. DEROXAT [Suspect]
     Active Substance: PAROXETINE HYDROCHLORIDE
     Dosage: 100 MG, SINGLE
     Route: 048
     Dates: start: 20170524, end: 20170524
  6. SOLIAN [Suspect]
     Active Substance: AMISULPRIDE
     Dosage: 3 G, SINGLE
     Route: 048
     Dates: start: 20170524, end: 20170524
  7. COVERAM [Suspect]
     Active Substance: AMLODIPINE\PERINDOPRIL
     Indication: HYPERTENSION
     Dosage: UNK
     Route: 048
     Dates: end: 20170523
  8. ESIDREX [Suspect]
     Active Substance: HYDROCHLOROTHIAZIDE
     Indication: HYPERTENSION
     Dosage: UNK
     Route: 048
     Dates: end: 20170523
  9. IMOVANE [Suspect]
     Active Substance: ZOPICLONE
     Indication: PRODUCT USED FOR UNKNOWN INDICATION
     Dosage: 7.5 MG, UNK
     Route: 048
     Dates: end: 20170523
  10. XEROQUEL [Suspect]
     Active Substance: QUETIAPINE FUMARATE
     Indication: PRODUCT USED FOR UNKNOWN INDICATION
     Dosage: 400 MG, UNK
     Route: 048
     Dates: end: 20170523
  11. STILNOX [Suspect]
     Active Substance: ZOLPIDEM TARTRATE
     Indication: PRODUCT USED FOR UNKNOWN INDICATION
     Dosage: 10 MG, UNK
     Route: 048
     Dates: end: 20170523
  12. ESIDREX [Suspect]
     Active Substance: HYDROCHLOROTHIAZIDE
     Dosage: 125 MG, QD
     Route: 048
     Dates: start: 20170524, end: 20170524
  13. IMOVANE [Suspect]
     Active Substance: ZOPICLONE
     Dosage: 7.5 MG, SINGLE
     Route: 048
     Dates: start: 20170524, end: 20170524
  14. LOXAPAC                            /00401802/ [Suspect]
     Active Substance: LOXAPINE SUCCINATE
     Dosage: 125 MG, SINGLE
     Route: 048
     Dates: start: 20170524, end: 20170524
  15. XEROQUEL [Suspect]
     Active Substance: QUETIAPINE FUMARATE
     Dosage: 2 G, SINGLE
     Route: 048
     Dates: start: 20170524, end: 20170524
  16. LOXAPAC                            /00401802/ [Suspect]
     Active Substance: LOXAPINE SUCCINATE
     Indication: PRODUCT USED FOR UNKNOWN INDICATION
     Dosage: 25 MG, UNK
     Route: 048
     Dates: end: 20170523
  17. SOLIAN [Suspect]
     Active Substance: AMISULPRIDE
     Indication: PRODUCT USED FOR UNKNOWN INDICATION
     Dosage: UNK
     Route: 048
     Dates: end: 20170523
  18. XANAX [Suspect]
     Active Substance: ALPRAZOLAM
     Indication: PRODUCT USED FOR UNKNOWN INDICATION
     Dosage: 0.25 MG, UNK
     Route: 048
     Dates: end: 20170523
  19. STILNOX [Suspect]
     Active Substance: ZOLPIDEM TARTRATE
     Dosage: 50 MG, SINGLE
     Route: 048
     Dates: start: 20170524, end: 20170524
  20. XANAX [Suspect]
     Active Substance: ALPRAZOLAM
     Dosage: 1.25 MG, SINGLE
     Route: 048
     Dates: start: 20170524, end: 20170524

REACTIONS (4)
  - Sinus tachycardia [Recovered/Resolved]
  - Disturbance in attention [Recovered/Resolved]
  - Poisoning deliberate [Recovered/Resolved]
  - Intentional overdose [Recovered/Resolved]

NARRATIVE: CASE EVENT DATE: 20170524
